FAERS Safety Report 18362165 (Version 9)
Quarter: 2021Q4

REPORT INFORMATION
  Report Type: Report from Study
  Country: KR (occurrence: None)
  Receive Date: 20201009
  Receipt Date: 20211113
  Transmission Date: 20220303
  Serious: Yes (Death, Hospitalization)
  Sender: FDA-Public Use
  Company Number: KR-ROCHE-2689466

PATIENT
  Age: 67 Year
  Sex: Male
  Weight: 50 kg

DRUGS (39)
  1. PLACEBO [Suspect]
     Active Substance: UNSPECIFIED INGREDIENT
     Indication: Non-small cell lung cancer
     Dosage: ON SAME DAY, HE RECEIVED MOST RECENT DOSE OF PLACEBO PRIOR TO ADVERSE EVENT (AE)/SERIOUS ADVERSE EVE
     Route: 042
     Dates: start: 20200918
  2. ATEZOLIZUMAB [Suspect]
     Active Substance: ATEZOLIZUMAB
     Indication: Non-small cell lung cancer
     Dosage: ON SAME DAY, HE RECEIVED MOST RECENT DOSE OF IV ATEZOLIZUMAB 1200 MG PRIOR TO AE/SAE ONSET.
     Route: 042
     Dates: start: 20200918
  3. NUCYNTA ER [Concomitant]
     Active Substance: TAPENTADOL HYDROCHLORIDE
     Indication: Back pain
     Route: 048
     Dates: start: 20200817, end: 20201001
  4. NUCYNTA [Concomitant]
     Active Substance: TAPENTADOL HYDROCHLORIDE
     Indication: Back pain
     Route: 048
     Dates: start: 20200817, end: 20201001
  5. NEUSTATIN A [Concomitant]
     Route: 048
     Dates: start: 20201001, end: 20201001
  6. SENSIVAL [Concomitant]
     Route: 048
     Dates: start: 20200917
  7. SUTILEN 2X [Concomitant]
     Route: 048
     Dates: end: 20201001
  8. ACECLOFENAC [Concomitant]
     Active Substance: ACECLOFENAC
     Indication: Back pain
     Route: 048
     Dates: start: 20200910, end: 20201001
  9. ACETAMINOPHEN [Concomitant]
     Active Substance: ACETAMINOPHEN
     Route: 048
     Dates: start: 20200918, end: 20201001
  10. ROBADIPIN [Concomitant]
     Indication: Hypertension
     Route: 048
     Dates: start: 20201001, end: 20201001
  11. IBU [Concomitant]
     Active Substance: IBUPROFEN
     Route: 048
     Dates: start: 20200909
  12. MIDAZOLAM [Concomitant]
     Active Substance: MIDAZOLAM
     Indication: Confusional state
     Route: 042
     Dates: start: 20201001, end: 20201001
  13. ETOMIDATE [Concomitant]
     Active Substance: ETOMIDATE
     Indication: Confusional state
     Route: 042
     Dates: start: 20201001, end: 20201001
  14. ETOMIDATE [Concomitant]
     Active Substance: ETOMIDATE
     Route: 042
     Dates: start: 20201001, end: 20201001
  15. LASIX [Concomitant]
     Active Substance: FUROSEMIDE
     Indication: Urine output decreased
     Route: 042
     Dates: start: 20201001, end: 20201003
  16. LASIX [Concomitant]
     Active Substance: FUROSEMIDE
     Route: 042
     Dates: start: 20201002, end: 20201002
  17. LASIX [Concomitant]
     Active Substance: FUROSEMIDE
     Route: 042
     Dates: start: 20201003, end: 20201003
  18. SUCCINYLCHOLINE [Concomitant]
     Active Substance: SUCCINYLCHOLINE
     Route: 042
     Dates: start: 20201001, end: 20201001
  19. SODIUM BICARBONATE [Concomitant]
     Active Substance: SODIUM BICARBONATE
     Indication: Acidosis
     Dosage: 80 OTHER
     Route: 042
     Dates: start: 20201002, end: 20201002
  20. SODIUM BICARBONATE [Concomitant]
     Active Substance: SODIUM BICARBONATE
     Dosage: 40 OTHER
     Route: 042
     Dates: start: 20201002, end: 20201002
  21. SODIUM BICARBONATE [Concomitant]
     Active Substance: SODIUM BICARBONATE
     Dosage: 120 OTHER
     Route: 042
     Dates: start: 20201003, end: 20201003
  22. SODIUM BICARBONATE [Concomitant]
     Active Substance: SODIUM BICARBONATE
     Dosage: 160 OTHER
     Route: 042
     Dates: start: 20201003, end: 20201003
  23. EPINEPHRINE [Concomitant]
     Active Substance: EPINEPHRINE
     Indication: Cardiac arrest
     Route: 042
     Dates: start: 20201002, end: 20201002
  24. FENTANYL [Concomitant]
     Active Substance: FENTANYL
     Route: 042
     Dates: start: 20201002, end: 20201002
  25. PANTOPRAZOLE SODIUM [Concomitant]
     Active Substance: PANTOPRAZOLE SODIUM
     Route: 042
     Dates: start: 20201002, end: 20201003
  26. ULTIAN [Concomitant]
     Route: 042
     Dates: start: 20201002, end: 20201003
  27. FRESOFOL [Concomitant]
     Route: 042
     Dates: start: 20201002, end: 20201003
  28. HEPARIN [Concomitant]
     Active Substance: HEPARIN SODIUM
     Route: 058
     Dates: start: 20201002, end: 20201003
  29. NORPINE [Concomitant]
     Indication: Cardiac arrest
     Route: 042
     Dates: start: 20201002, end: 20201003
  30. NORPINE [Concomitant]
     Route: 042
     Dates: start: 20201002, end: 20201003
  31. LAMINA-G [Concomitant]
     Route: 048
     Dates: start: 20201002, end: 20201003
  32. VASOPRESSIN [Concomitant]
     Active Substance: VASOPRESSIN
     Indication: Cardiac arrest
     Route: 042
     Dates: start: 20201002, end: 20201002
  33. VASOPRESSIN [Concomitant]
     Active Substance: VASOPRESSIN
     Route: 042
     Dates: start: 20201002, end: 20201003
  34. NEXIUM [Concomitant]
     Active Substance: ESOMEPRAZOLE MAGNESIUM
     Indication: Pyrexia
     Route: 042
     Dates: start: 20201002, end: 20201002
  35. PROPACETAMOL HYDROCHLORIDE [Concomitant]
     Active Substance: PROPACETAMOL HYDROCHLORIDE
     Indication: Pyrexia
     Route: 042
     Dates: start: 20201002, end: 20201002
  36. HUMULIN R [Concomitant]
     Active Substance: INSULIN HUMAN
     Indication: Hyperglycaemia
     Route: 042
     Dates: start: 20201003, end: 20201003
  37. HUMULIN R [Concomitant]
     Active Substance: INSULIN HUMAN
     Route: 042
     Dates: start: 20201003, end: 20201003
  38. PROFA [Concomitant]
     Indication: Pyrexia
     Route: 042
     Dates: start: 20201003, end: 20201003
  39. CALCIUM GLUCONATE [Concomitant]
     Active Substance: CALCIUM GLUCONATE
     Indication: Hypocalcaemia
     Route: 042
     Dates: start: 20201003, end: 20201003

REACTIONS (1)
  - Immune-mediated encephalitis [Fatal]

NARRATIVE: CASE EVENT DATE: 20201001
